FAERS Safety Report 21297344 (Version 1)
Quarter: 2022Q3

REPORT INFORMATION
  Report Type: Spontaneous
  Country: US (occurrence: US)
  Receive Date: 20220906
  Receipt Date: 20220906
  Transmission Date: 20221027
  Serious: Yes (Hospitalization, Other)
  Sender: FDA-Public Use
  Company Number: US-MYLANLABS-2022M1090764

PATIENT
  Age: 40 Year
  Sex: Male

DRUGS (7)
  1. TACROLIMUS [Interacting]
     Active Substance: TACROLIMUS
     Indication: Immunosuppressant drug therapy
     Dosage: 6MG IN THE MORNING AND 5MG AT NIGHT
     Route: 065
  2. TACROLIMUS [Interacting]
     Active Substance: TACROLIMUS
     Dosage: 3MG IN THE MORNING AND 2MG AT NIGHT- ALONG WITH NIRMATRELVIR+RITONAVIR
     Route: 065
  3. TACROLIMUS [Interacting]
     Active Substance: TACROLIMUS
     Dosage: 1 MILLIGRAM, BID (DOSE REDUCED TO 1MG TWICE DAILY
     Route: 065
  4. TACROLIMUS [Interacting]
     Active Substance: TACROLIMUS
     Dosage: 1 MILLIGRAM, BID (RE-CHALLENGED WITH TACROLIMUS 1MG TWICE DAILY)
     Route: 065
  5. RIFAMPIN [Interacting]
     Active Substance: RIFAMPIN
     Indication: Toxicity to various agents
     Dosage: 600 MILLIGRAM (ON DAY 3)
     Route: 065
  6. RIFAMPIN [Interacting]
     Active Substance: RIFAMPIN
     Dosage: 600 MILLIGRAM (TWO ADDITIONAL DOSES ON DAY 4)
     Route: 065
  7. NIRMATRELVIR\RITONAVIR [Interacting]
     Active Substance: NIRMATRELVIR\RITONAVIR
     Indication: COVID-19
     Dosage: 150/100MG, BID
     Route: 065

REACTIONS (9)
  - Fatigue [Recovering/Resolving]
  - Back pain [Recovering/Resolving]
  - Abdominal pain [Recovering/Resolving]
  - Hypotension [Recovered/Resolved]
  - Tachypnoea [Recovered/Resolved]
  - Acute kidney injury [Recovering/Resolving]
  - Toxicity to various agents [Recovering/Resolving]
  - Labelled drug-drug interaction medication error [Recovering/Resolving]
  - Hypertransaminasaemia [Recovering/Resolving]
